FAERS Safety Report 11466096 (Version 1)
Quarter: 2015Q3

REPORT INFORMATION
  Report Type: Spontaneous
  Country: US (occurrence: US)
  Receive Date: 20150907
  Receipt Date: 20150907
  Transmission Date: 20151125
  Serious: No
  Sender: FDA-Public Use
  Company Number: US-EMD SERONO-8040818

PATIENT
  Sex: Female

DRUGS (3)
  1. AMPYRA [Suspect]
     Active Substance: DALFAMPRIDINE
     Indication: PRODUCT USED FOR UNKNOWN INDICATION
  2. REBIF [Suspect]
     Active Substance: INTERFERON BETA-1A
     Indication: MULTIPLE SCLEROSIS
  3. GILENYA [Suspect]
     Active Substance: FINGOLIMOD HYDROCHLORIDE
     Indication: MULTIPLE SCLEROSIS
     Dates: start: 201507

REACTIONS (14)
  - Anxiety [Unknown]
  - Palpitations [Unknown]
  - Cardiac flutter [Unknown]
  - Diarrhoea [Unknown]
  - Paraesthesia [Unknown]
  - Visual impairment [Unknown]
  - Drug ineffective [Unknown]
  - Dyspnoea [Unknown]
  - Memory impairment [Unknown]
  - Decreased appetite [Unknown]
  - Hypoaesthesia [Unknown]
  - Back pain [Unknown]
  - Insomnia [Unknown]
  - Influenza like illness [Unknown]
